FAERS Safety Report 9929828 (Version 2)
Quarter: 2014Q3

REPORT INFORMATION
  Report Type: Spontaneous
  Country: US (occurrence: US)
  Receive Date: 20140227
  Receipt Date: 20140908
  Transmission Date: 20150326
  Serious: Yes (Death, Hospitalization, Other)
  Sender: FDA-Public Use
  Company Number: US-009507513-1402USA013102

PATIENT
  Sex: Male
  Weight: 76.19 kg

DRUGS (1)
  1. JANUVIA [Suspect]
     Active Substance: SITAGLIPTIN PHOSPHATE
     Indication: TYPE 2 DIABETES MELLITUS
     Dosage: 100 MG, QD
     Route: 048
     Dates: end: 20110119

REACTIONS (26)
  - Pancreatitis [Unknown]
  - Knee operation [Unknown]
  - Ureteral stent insertion [Unknown]
  - Renal stone removal [Unknown]
  - Intestinal obstruction [Unknown]
  - Gastroenterostomy [Unknown]
  - Essential hypertension [Unknown]
  - Nephrolithiasis [Unknown]
  - Death [Fatal]
  - Radiotherapy [Unknown]
  - Pancreatic carcinoma [Unknown]
  - Metastases to peritoneum [Unknown]
  - Hernia repair [Unknown]
  - Neuropathy peripheral [Unknown]
  - Rotator cuff repair [Unknown]
  - Hyperglycaemia [Unknown]
  - Musculoskeletal pain [Unknown]
  - Venous thrombosis [Unknown]
  - Staphylococcal skin infection [Unknown]
  - Splenectomy [Unknown]
  - Ascites [Unknown]
  - Pancreatectomy [Unknown]
  - Hyperlipidaemia [Unknown]
  - Osteoarthritis [Unknown]
  - Oedema peripheral [Unknown]
  - Anaemia of chronic disease [Unknown]

NARRATIVE: CASE EVENT DATE: 2011
